FAERS Safety Report 18714146 (Version 1)
Quarter: 2021Q1

REPORT INFORMATION
  Report Type: Spontaneous
  Country: US (occurrence: US)
  Receive Date: 20210107
  Receipt Date: 20210107
  Transmission Date: 20210419
  Serious: No
  Sender: FDA-Public Use
  Company Number: US-PFIZER INC-2021010202

PATIENT
  Sex: Female

DRUGS (6)
  1. BEXTRA [BUCINDOLOL HYDROCHLORIDE] [Suspect]
     Active Substance: BUCINDOLOL HYDROCHLORIDE
     Dosage: UNK
  2. LISINOPRIL. [Suspect]
     Active Substance: LISINOPRIL
     Dosage: UNK
  3. FELDENE [Suspect]
     Active Substance: PIROXICAM
     Dosage: UNK
  4. TAPAZOLE [Suspect]
     Active Substance: METHIMAZOLE
     Dosage: UNK
  5. INDOCIN [Suspect]
     Active Substance: INDOMETHACIN
     Dosage: UNK
  6. LOSARTAN. [Suspect]
     Active Substance: LOSARTAN
     Dosage: UNK

REACTIONS (1)
  - Drug hypersensitivity [Unknown]
